FAERS Safety Report 8947822 (Version 1)
Quarter: 2012Q4

REPORT INFORMATION
  Report Type: 
  Country: CA (occurrence: CA)
  Receive Date: 20121204
  Receipt Date: 20121204
  Transmission Date: 20130627
  Serious: Yes (Hospitalization)
  Sender: FDA-Public Use
  Company Number: CA-BAXTER-2012BAX025246

PATIENT
  Sex: Female

DRUGS (2)
  1. DIANEAL PD 101 SOLUTION WITH 0.5% DEXTROSE [Suspect]
     Indication: CONTINUOUS AMBULATORY PERITONEAL DIALYSIS
     Route: 033
  2. DIANEAL PD4 SOLUTION WITH 1.5% DEXTROSE AND 2.5 MEQ/L CALCIUM [Suspect]
     Indication: CONTINUOUS AMBULATORY PERITONEAL DIALYSIS
     Route: 033

REACTIONS (2)
  - Cerebral haemorrhage [Recovering/Resolving]
  - Embolism [Recovered/Resolved]
